FAERS Safety Report 8107876-5 (Version None)
Quarter: 2012Q1

REPORT INFORMATION
  Report Type: 
  Country: None (occurrence: None)
  Receive Date: 20120202
  Receipt Date: 20120121
  Transmission Date: 20120608
  Serious: Yes (Other)
  Sender: FDA-Public Use
  Company Number: US-PFIZER INC-2011283457

PATIENT
  Age: 5 Year
  Sex: Female
  Weight: 16 kg

DRUGS (3)
  1. ONDANSETRON [Concomitant]
     Dosage: 4 MG, 2X/DAY
     Route: 048
     Dates: start: 20111102, end: 20111130
  2. CRIZOTINIB [Suspect]
     Indication: NEUROBLASTOMA
     Dosage: 365 MG/M2, 2X/DAY, FOR 28 DAYS
     Route: 048
     Dates: start: 20111027, end: 20111117
  3. LOPERAMIDE [Concomitant]
     Dosage: UNK

REACTIONS (3)
  - ASPARTATE AMINOTRANSFERASE INCREASED [None]
  - GAMMA-GLUTAMYLTRANSFERASE INCREASED [None]
  - ALANINE AMINOTRANSFERASE INCREASED [None]
